FAERS Safety Report 10602125 (Version 1)
Quarter: 2014Q4

REPORT INFORMATION
  Report Type: Spontaneous
  Country: JP (occurrence: JP)
  Receive Date: 20141124
  Receipt Date: 20141124
  Transmission Date: 20150529
  Serious: Yes (Death)
  Sender: FDA-Public Use
  Company Number: JP-BRISTOL-MYERS SQUIBB COMPANY-21612825

PATIENT
  Age: 63 Year
  Sex: Female

DRUGS (18)
  1. JANUVIA [Concomitant]
     Active Substance: SITAGLIPTIN PHOSPHATE
  2. NORVASC [Concomitant]
     Active Substance: AMLODIPINE BESYLATE
  3. NOVORAPID [Concomitant]
     Active Substance: INSULIN ASPART
  4. NIFEDIPINE. [Concomitant]
     Active Substance: NIFEDIPINE
  5. BUFFERIN [Concomitant]
     Active Substance: ASPIRIN
  6. SENNA [Concomitant]
     Active Substance: SENNA LEAF\SENNOSIDES\SENNOSIDES A AND B
  7. FORXIGA [Suspect]
     Active Substance: DAPAGLIFLOZIN
     Indication: TYPE 2 DIABETES MELLITUS
     Dosage: 5 MG TABS?28-OCT-2014 -29-OCT-2014 :5MG
     Route: 048
     Dates: start: 20141028, end: 20141105
  8. ISODINE [Concomitant]
     Active Substance: POVIDONE-IODINE
  9. MAGLAX [Concomitant]
     Active Substance: MAGNESIUM OXIDE
  10. DIOVAN [Concomitant]
     Active Substance: VALSARTAN
  11. INSULIN [Concomitant]
     Active Substance: INSULIN NOS
  12. PURSENNID [Concomitant]
     Active Substance: SENNOSIDES A AND B
  13. FLUTICASONE FUROATE [Concomitant]
     Active Substance: FLUTICASONE FUROATE
  14. GASTER [Concomitant]
     Active Substance: FAMOTIDINE
  15. METGLUCO [Concomitant]
     Active Substance: METFORMIN HYDROCHLORIDE
  16. GLUCOBAY [Concomitant]
     Active Substance: ACARBOSE
  17. ACTOS [Concomitant]
     Active Substance: PIOGLITAZONE HYDROCHLORIDE
  18. LAXOBERON [Concomitant]
     Active Substance: SODIUM PICOSULFATE

REACTIONS (2)
  - Pneumonia [Fatal]
  - Wrong technique in drug usage process [Unknown]

NARRATIVE: CASE EVENT DATE: 2014
